FAERS Safety Report 7071004-8 (Version None)
Quarter: 2010Q4

REPORT INFORMATION
  Report Type: 
  Country: None (occurrence: None)
  Receive Date: 20101027
  Receipt Date: 20101027
  Transmission Date: 20110411
  Serious: Yes (Disabling, Other)
  Sender: FDA-Public Use
  Company Number: None

PATIENT
  Sex: Female
  Weight: 108.8633 kg

DRUGS (4)
  1. ARMOUR THYROID 1 GRAM FOREST [Suspect]
     Indication: THYROID CANCER
     Dosage: 3 TABS DAILY PO
     Route: 048
     Dates: start: 20100101, end: 20100930
  2. ARMOUR THYROID 1 GRAM FOREST [Suspect]
     Indication: THYROIDECTOMY
     Dosage: 3 TABS DAILY PO
     Route: 048
     Dates: start: 20100101, end: 20100930
  3. ARMOUR THYROID 30 MG FOREST [Suspect]
     Indication: THYROID CANCER
     Dosage: 1 TAB DAILY PO
     Route: 048
     Dates: start: 20100101, end: 20100930
  4. ARMOUR THYROID 30 MG FOREST [Suspect]
     Indication: THYROIDECTOMY
     Dosage: 1 TAB DAILY PO
     Route: 048
     Dates: start: 20100101, end: 20100930

REACTIONS (2)
  - BLOOD THYROID STIMULATING HORMONE ABNORMAL [None]
  - PRODUCT FORMULATION ISSUE [None]
